FAERS Safety Report 6591666-9 (Version None)
Quarter: 2010Q1

REPORT INFORMATION
  Report Type: 
  Country: None (occurrence: None)
  Receive Date: 20100221
  Receipt Date: 20090629
  Transmission Date: 20100710
  Serious: Yes (Other)
  Sender: FDA-Public Use
  Company Number: US-ALLERGAN-0902130US

PATIENT
  Age: 72 Year
  Sex: Male
  Weight: 55.329 kg

DRUGS (2)
  1. BOTOX [Suspect]
     Indication: TORTICOLLIS
     Dosage: 100 UNITS, SINGLE
     Route: 030
     Dates: start: 20080915, end: 20080915
  2. BOTOX [Suspect]
     Indication: PAIN

REACTIONS (3)
  - MUSCLE SPASMS [None]
  - PARADOXICAL DRUG REACTION [None]
  - WRONG TECHNIQUE IN DRUG USAGE PROCESS [None]
